FAERS Safety Report 7049361-8 (Version None)
Quarter: 2010Q4

REPORT INFORMATION
  Report Type: 
  Country: None (occurrence: None)
  Receive Date: 20101018
  Receipt Date: 20101007
  Transmission Date: 20110411
  Serious: Yes (Death, Hospitalization)
  Sender: FDA-Public Use
  Company Number: BR-SANOFI-AVENTIS-2010SA060806

PATIENT
  Age: 70 Year
  Sex: Male

DRUGS (3)
  1. OXALIPLATIN [Suspect]
  2. CAPECITABINE [Suspect]
     Indication: COLORECTAL CANCER
  3. DEXPANTHENOL [Suspect]
     Route: 061
     Dates: start: 20100811, end: 20100826

REACTIONS (2)
  - GASTROINTESTINAL TOXICITY [None]
  - RENAL FAILURE ACUTE [None]
